FAERS Safety Report 24153559 (Version 2)
Quarter: 2024Q3

REPORT INFORMATION
  Report Type: Spontaneous
  Country: SE (occurrence: SE)
  Receive Date: 20240730
  Receipt Date: 20240829
  Transmission Date: 20241017
  Serious: Yes (Other)
  Sender: SANDOZ
  Company Number: SE-MLMSERVICE-20210614-2944632-1

PATIENT
  Sex: Female
  Weight: 16.7 kg

DRUGS (4)
  1. PREDNISOLONE [Suspect]
     Active Substance: PREDNISOLONE
     Indication: Immunosuppressant drug therapy
     Dosage: UNK
     Route: 048
     Dates: start: 201906
  2. RITUXIMAB [Suspect]
     Active Substance: RITUXIMAB
     Indication: Post transplant lymphoproliferative disorder
     Dosage: WEEKLY DOSES OF RITUXIMAB DURING FOUR CONSECUTIVE WEEKS
     Route: 042
     Dates: start: 2020
  3. TACROLIMUS [Suspect]
     Active Substance: TACROLIMUS
     Indication: Immunosuppressant drug therapy
     Dosage: UNK
     Route: 048
     Dates: start: 201906
  4. TRAMETINIB [Suspect]
     Active Substance: TRAMETINIB
     Indication: Hepatic angiosarcoma
     Dosage: UNK
     Route: 048

REACTIONS (6)
  - Post transplant lymphoproliferative disorder [Unknown]
  - Vaccine virus shedding [Unknown]
  - COVID-19 [Recovered/Resolved]
  - Rhinovirus infection [Unknown]
  - Decreased immune responsiveness [Unknown]
  - Adenovirus infection [Unknown]

NARRATIVE: CASE EVENT DATE: 20200101
